FAERS Safety Report 4799330-3 (Version None)
Quarter: 2005Q4

REPORT INFORMATION
  Report Type: 
  Country: None (occurrence: None)
  Receive Date: 20051013
  Receipt Date: 20050906
  Transmission Date: 20060501
  Serious: Yes (Death, Hospitalization, Other)
  Sender: FDA-Public Use
  Company Number: 8012398

PATIENT
  Age: 15 Year
  Sex: Male

DRUGS (3)
  1. PREDNISOLONE [Suspect]
     Indication: LIVER TRANSPLANT
  2. PROGRAF [Suspect]
     Indication: LIVER TRANSPLANT
  3. MYCOPHENOLATE MOFETIL [Suspect]

REACTIONS (9)
  - ASPERGILLOSIS [None]
  - AUTOIMMUNE HEPATITIS [None]
  - BRONCHOPULMONARY ASPERGILLOSIS [None]
  - CHOLANGITIS [None]
  - HAEMOPTYSIS [None]
  - HYDROPNEUMOTHORAX [None]
  - PSEUDOMONAS INFECTION [None]
  - PULMONARY CAVITATION [None]
  - RESPIRATORY FAILURE [None]
